FAERS Safety Report 7199333-8 (Version None)
Quarter: 2010Q4

REPORT INFORMATION
  Report Type: 
  Country: None (occurrence: None)
  Receive Date: 20101228
  Receipt Date: 20101222
  Transmission Date: 20110411
  Serious: Yes (Hospitalization)
  Sender: FDA-Public Use
  Company Number: FR-BRISTOL-MYERS SQUIBB COMPANY-15458060

PATIENT
  Age: 81 Year
  Sex: Female

DRUGS (3)
  1. COUMADIN [Suspect]
     Dates: end: 20100119
  2. CARDENSIEL [Concomitant]
  3. LASIX [Concomitant]

REACTIONS (3)
  - FALL [None]
  - SUBARACHNOID HAEMORRHAGE [None]
  - TRAUMATIC BRAIN INJURY [None]
